FAERS Safety Report 8564496-6 (Version None)
Quarter: 2012Q3

REPORT INFORMATION
  Report Type: 
  Country: None (occurrence: None)
  Receive Date: 20120803
  Receipt Date: 20120731
  Transmission Date: 20120928
  Serious: Yes (Other)
  Sender: FDA-Public Use
  Company Number: DE-PFIZER INC-2012186301

PATIENT
  Age: 81 Year
  Sex: Male

DRUGS (6)
  1. SANDOSTATIN [Suspect]
     Indication: PANCREATIC NEUROENDOCRINE TUMOUR
     Dosage: 30 MG, UNK
     Route: 030
  2. MOXONIDINE [Suspect]
     Indication: HYPERTENSION
     Dosage: UNK
     Route: 048
  3. PROPIVERINE [Suspect]
     Indication: URINARY INCONTINENCE
     Dosage: 15 MG, DAILY
     Route: 048
     Dates: start: 20120601
  4. METFORMIN [Concomitant]
     Dosage: 1000 MG, 2X/DAY
  5. ZOMETA [Suspect]
     Indication: METASTASES TO BONE
     Dosage: 3.5 MG/5ML
     Dates: end: 20120401
  6. NORVASC [Suspect]
     Indication: HYPERTENSION
     Dosage: 5 MG, 2X/DAY

REACTIONS (3)
  - DEHYDRATION [None]
  - FLUID INTAKE REDUCED [None]
  - CIRCULATORY COLLAPSE [None]
